FAERS Safety Report 8361238-4 (Version None)
Quarter: 2012Q2

REPORT INFORMATION
  Report Type: 
  Country: None (occurrence: None)
  Receive Date: 20120515
  Receipt Date: 20110721
  Transmission Date: 20120825
  Serious: No
  Sender: FDA-Public Use
  Company Number: US-ALEXION-A201101121

PATIENT
  Sex: Female

DRUGS (2)
  1. SOLIRIS [Suspect]
     Indication: PAROXYSMAL NOCTURNAL HAEMOGLOBINURIA
     Dosage: 900 MG, Q2W
     Route: 042
     Dates: start: 20071106
  2. REQUIP [Concomitant]
     Indication: RESTLESS LEGS SYNDROME

REACTIONS (4)
  - ARTHRALGIA [None]
  - PLANTAR FASCIITIS [None]
  - BLOOD GLUCOSE INCREASED [None]
  - RESTLESS LEGS SYNDROME [None]
